FAERS Safety Report 25627257 (Version 1)
Quarter: 2025Q3

REPORT INFORMATION
  Report Type: Spontaneous
  Country: US (occurrence: None)
  Receive Date: 20250730
  Receipt Date: 20250730
  Transmission Date: 20251020
  Serious: No
  Sender: FDA-CTU
  Company Number: None

PATIENT
  Age: 16 Year
  Sex: Female
  Weight: 40.05 kg

DRUGS (3)
  1. DOXYCYCLINE HYCLATE [Suspect]
     Active Substance: DOXYCYCLINE HYCLATE
     Indication: Acne
     Dosage: OTHER QUANTITY : 60 CAPSULE(S);?FREQUENCY : TWICE A DAY;?
     Route: 048
  2. DOXYCYCLINE [Concomitant]
     Active Substance: DOXYCYCLINE
  3. Spironolactone 25 mG once daily [Concomitant]

REACTIONS (8)
  - Micturition urgency [None]
  - Urethral pain [None]
  - Urinary incontinence [None]
  - Therapy cessation [None]
  - Enterobacter test positive [None]
  - Culture urine positive [None]
  - Impaired quality of life [None]
  - Loss of personal independence in daily activities [None]

NARRATIVE: CASE EVENT DATE: 20250624
